FAERS Safety Report 4491339-2 (Version None)
Quarter: 2004Q4

REPORT INFORMATION
  Report Type: 
  Country: None (occurrence: None)
  Receive Date: 20041101
  Receipt Date: 20041101
  Transmission Date: 20050328
  Serious: Yes (Disabling)
  Sender: FDA-Public Use
  Company Number: None

PATIENT
  Age: 23 Year
  Sex: Male
  Weight: 68.0396 kg

DRUGS (4)
  1. ZICAM COLD REMEDY .5 FL OZ; ZINCUM GLUCONIUM 2X MATRIXX INITIATIVES IN [Suspect]
     Indication: HEADACHE
     Dosage: 1 SPRY / NSTR EVERY 4 HOURS NASAL
     Route: 045
     Dates: start: 20041022, end: 20041025
  2. ZICAM COLD REMEDY .5 FL OZ; ZINCUM GLUCONIUM 2X MATRIXX INITIATIVES IN [Suspect]
     Indication: NASOPHARYNGITIS
     Dosage: 1 SPRY / NSTR EVERY 4 HOURS NASAL
     Route: 045
     Dates: start: 20041022, end: 20041025
  3. ZICAM COLD REMEDY .5 FL OZ; ZINCUM GLUCONIUM 2X MATRIXX INITIATIVES IN [Suspect]
     Indication: PYREXIA
     Dosage: 1 SPRY / NSTR EVERY 4 HOURS NASAL
     Route: 045
     Dates: start: 20041022, end: 20041025
  4. ZICAM COLD REMEDY .5 FL OZ; ZINCUM GLUCONIUM 2X MATRIXX INITIATIVES IN [Suspect]

REACTIONS (5)
  - ANOSMIA [None]
  - DYSGEUSIA [None]
  - HEADACHE [None]
  - PARAESTHESIA [None]
  - SINUS PAIN [None]
